FAERS Safety Report 5344330-8 (Version None)
Quarter: 2007Q2

REPORT INFORMATION
  Report Type: 
  Country: None (occurrence: None)
  Receive Date: 20070604
  Receipt Date: 20070530
  Transmission Date: 20071010
  Serious: Yes (Life-Threatening)
  Sender: FDA-Public Use
  Company Number: CN-SHR-CN-2007-019401

PATIENT
  Age: 45 Year
  Sex: Male

DRUGS (1)
  1. MAGNEVIST [Suspect]
     Indication: NUCLEAR MAGNETIC RESONANCE IMAGING
     Dosage: 15 ML, 1 DOSE
     Route: 042
     Dates: start: 20070519, end: 20070519

REACTIONS (2)
  - COMA [None]
  - PYREXIA [None]
